FAERS Safety Report 5980097-8 (Version None)
Quarter: 2008Q4

REPORT INFORMATION
  Report Type: 
  Country: None (occurrence: None)
  Receive Date: 20081205
  Receipt Date: 20081125
  Transmission Date: 20090506
  Serious: Yes (Other)
  Sender: FDA-Public Use
  Company Number: US-WYE-H07001908

PATIENT
  Sex: Female

DRUGS (2)
  1. PREMARIN [Suspect]
  2. ESTRACE [Suspect]

REACTIONS (1)
  - BREAST CANCER METASTATIC [None]
